FAERS Safety Report 5753079-9 (Version None)
Quarter: 2008Q2

REPORT INFORMATION
  Report Type: 
  Country: None (occurrence: None)
  Receive Date: 20080527
  Receipt Date: 20080516
  Transmission Date: 20081010
  Serious: Yes (Other)
  Sender: FDA-Public Use
  Company Number: GXKR2008GB04274

PATIENT
  Age: 15 Year
  Sex: Female
  Weight: 47 kg

DRUGS (8)
  1. OMEPRAZOLE [Suspect]
     Indication: HAEMORRHAGE
     Dosage: 20 MG, QD
     Dates: start: 20060601
  2. ZITHROMAX [Suspect]
     Indication: ANTIBIOTIC PROPHYLAXIS
     Dosage: 500 MG, QW3, ORAL
     Route: 048
     Dates: start: 20040101
  3. COLOMYCIN (COLISTIN) [Concomitant]
  4. CREON (AMYLASE, LIPASE, PANCREATIN, PROTEASE) [Concomitant]
  5. PULMOZYME [Concomitant]
  6. MULTIVITAMINS (ASCORBIC ACID, ERGOCALCIFEROL, FOLIC ACID, NICOTINAMIDE [Concomitant]
  7. FLUTICASONE W/SALMETEROL (FLUTICASONE, SALMETEROL) [Concomitant]
  8. SALBUTAMOL (SALBUTAMOL) [Concomitant]

REACTIONS (3)
  - DRUG INTERACTION [None]
  - HYPOGLYCAEMIA [None]
  - TREMOR [None]
